FAERS Safety Report 14159717 (Version 4)
Quarter: 2018Q1

REPORT INFORMATION
  Report Type: Spontaneous
  Country: US (occurrence: US)
  Receive Date: 20171106
  Receipt Date: 20180316
  Transmission Date: 20180508
  Serious: No
  Sender: FDA-Public Use
  Company Number: US-PFIZER INC-2017476098

PATIENT
  Age: 54 Year
  Sex: Female

DRUGS (1)
  1. IBRANCE [Suspect]
     Active Substance: PALBOCICLIB
     Indication: BREAST CANCER FEMALE
     Dosage: 125 MG, CYCLIC (TAKE 1 CAPSULE BY MOUTH DAILY FOR 21 DAYS THEN 7 DAYS OFF)
     Route: 048
     Dates: start: 201710

REACTIONS (8)
  - Oral pain [Unknown]
  - Paraesthesia [Unknown]
  - Nausea [Unknown]
  - Fatigue [Unknown]
  - Stomatitis [Unknown]
  - Alopecia [Unknown]
  - Hypoaesthesia [Unknown]
  - Arthralgia [Unknown]

NARRATIVE: CASE EVENT DATE: 2017
